FAERS Safety Report 7692161-6 (Version None)
Quarter: 2011Q3

REPORT INFORMATION
  Report Type: 
  Country: None (occurrence: None)
  Receive Date: 20110818
  Receipt Date: 20110809
  Transmission Date: 20111222
  Serious: Yes (Other)
  Sender: FDA-Public Use
  Company Number: PHHO2011AU10769

PATIENT
  Sex: Female

DRUGS (5)
  1. ISOPTIN [Concomitant]
  2. TASIGNA [Suspect]
     Indication: SYSTEMIC MASTOCYTOSIS
     Dosage: 400 MG, BID
     Route: 048
     Dates: start: 20100828, end: 20110613
  3. NEXIUM [Concomitant]
  4. LIPITOR [Concomitant]
  5. ASPIRIN [Concomitant]

REACTIONS (1)
  - DRUG INTOLERANCE [None]
